FAERS Safety Report 9198698 (Version 1)
Quarter: 2013Q1

REPORT INFORMATION
  Report Type: Spontaneous
  Country: FR (occurrence: FR)
  Receive Date: 20130329
  Receipt Date: 20130329
  Transmission Date: 20140127
  Serious: Yes (Hospitalization, Other)
  Sender: FDA-Public Use
  Company Number: FR-PFIZER INC-2013100255

PATIENT
  Age: 87 Year
  Sex: Female

DRUGS (7)
  1. CORDARONE [Suspect]
     Indication: ARRHYTHMIA
     Dosage: 200 MG, THREE TIMES WEEKLY
     Route: 048
     Dates: end: 20130107
  2. KARDEGIC [Suspect]
     Indication: ARRHYTHMIA
     Dosage: 75 MG, 1X/DAY
     Route: 048
     Dates: end: 20130107
  3. XARELTO [Suspect]
     Indication: DEEP VEIN THROMBOSIS
     Dosage: 30 MG, 1X/DAY
     Route: 048
     Dates: end: 20130107
  4. LEVOTHYROX [Concomitant]
     Dosage: UNK
  5. EXELON [Concomitant]
     Dosage: UNK
     Dates: end: 20130107
  6. RISPERDAL [Concomitant]
     Dosage: UNK
  7. PANTOPRAZOLE [Concomitant]
     Dosage: UNK

REACTIONS (13)
  - Cerebral haemorrhage [Recovering/Resolving]
  - Fall [Unknown]
  - Face injury [Unknown]
  - Head injury [Unknown]
  - Subdural haematoma [Recovering/Resolving]
  - Meningorrhagia [Recovering/Resolving]
  - Disorientation [Unknown]
  - Logorrhoea [Unknown]
  - Aphasia [Unknown]
  - Cognitive disorder [Unknown]
  - Radius fracture [Unknown]
  - Urinary retention [Unknown]
  - Bradycardia [Unknown]
